FAERS Safety Report 6415584-1 (Version None)
Quarter: 2009Q4

REPORT INFORMATION
  Report Type: 
  Country: None (occurrence: None)
  Receive Date: 20091027
  Receipt Date: 20091021
  Transmission Date: 20100525
  Serious: Yes (Other)
  Sender: FDA-Public Use
  Company Number: FR-BRISTOL-MYERS SQUIBB COMPANY-14829741

PATIENT
  Sex: Male

DRUGS (1)
  1. IRBESARTAN [Suspect]
     Dosage: DURATION: FOR MORE THAN ONE YEAR.

REACTIONS (1)
  - VASCULITIS [None]
